FAERS Safety Report 7503248-2 (Version None)
Quarter: 2011Q2

REPORT INFORMATION
  Report Type: 
  Country: None (occurrence: None)
  Receive Date: 20110525
  Receipt Date: 20100528
  Transmission Date: 20111010
  Serious: No
  Sender: FDA-Public Use
  Company Number: A0861998A

PATIENT
  Sex: Female

DRUGS (11)
  1. BENTYL [Concomitant]
  2. ALLEGRA [Concomitant]
  3. BACTROBAN [Suspect]
     Indication: VAGINAL CYST
     Dosage: 1VA VARIABLE DOSE
     Route: 061
  4. ATENOLOL [Concomitant]
  5. SINGULAIR [Concomitant]
  6. MUCINEX [Concomitant]
  7. PREVACID [Concomitant]
  8. ZINC [Concomitant]
  9. PROVENTIL [Concomitant]
  10. CENTRUM [Concomitant]
  11. ASCORBIC ACID [Concomitant]

REACTIONS (2)
  - HYPERSENSITIVITY [None]
  - PRURITUS GENERALISED [None]
